FAERS Safety Report 8470485-2 (Version None)
Quarter: 2012Q2

REPORT INFORMATION
  Report Type: 
  Country: None (occurrence: None)
  Receive Date: 20120627
  Receipt Date: 20110513
  Transmission Date: 20120825
  Serious: No
  Sender: FDA-Public Use
  Company Number: US-MYLANLABS-2011S1005380

PATIENT
  Age: 79 Year
  Sex: Male
  Weight: 83.92 kg

DRUGS (5)
  1. ALBUTEROL [Concomitant]
  2. PROTON PUMP INHIBITORS [Concomitant]
  3. SPIRIVA [Concomitant]
  4. PERFOROMIST [Suspect]
     Indication: CHRONIC OBSTRUCTIVE PULMONARY DISEASE
     Route: 055
     Dates: start: 20110310
  5. BLOOD PRESSURE MEDICATION [Concomitant]
     Dates: start: 20110225

REACTIONS (1)
  - DIZZINESS [None]
